FAERS Safety Report 4846080-0 (Version None)
Quarter: 2005Q4

REPORT INFORMATION
  Report Type: 
  Country: None (occurrence: None)
  Receive Date: 20051201
  Receipt Date: 20051118
  Transmission Date: 20060501
  Serious: Yes (Other)
  Sender: FDA-Public Use
  Company Number: 2004230314CA

PATIENT
  Age: 40 Year
  Sex: Female
  Weight: 77.5 kg

DRUGS (3)
  1. SOMAVERT [Suspect]
     Indication: ACROMEGALY
     Dosage: 10 MG (QD), SUBCUTANEOUS
     Route: 058
     Dates: start: 20040820, end: 20040821
  2. ACETAMINOPHEN [Concomitant]
  3. SYNTHROID [Concomitant]

REACTIONS (11)
  - BODY TEMPERATURE INCREASED [None]
  - DIFFICULTY IN WALKING [None]
  - FEELING ABNORMAL [None]
  - HYPERSENSITIVITY [None]
  - MOVEMENT DISORDER [None]
  - MUSCULOSKELETAL STIFFNESS [None]
  - MYALGIA [None]
  - OEDEMA PERIPHERAL [None]
  - PRURITUS [None]
  - RASH MACULAR [None]
  - URTICARIA [None]
